FAERS Safety Report 4530522-4 (Version None)
Quarter: 2004Q4

REPORT INFORMATION
  Report Type: 
  Country: None (occurrence: None)
  Receive Date: 20041215
  Receipt Date: 20041202
  Transmission Date: 20050328
  Serious: Yes (Hospitalization)
  Sender: FDA-Public Use
  Company Number: 2004-BP-13189BP

PATIENT
  Age: 73 Year
  Sex: Male

DRUGS (8)
  1. SPIRIVA [Suspect]
     Indication: CHRONIC OBSTRUCTIVE AIRWAYS DISEASE
     Dosage: 18 MCG (18 MCG), IH
     Route: 055
     Dates: start: 20040611
  2. VERAPAMIL [Concomitant]
  3. DIGITALIS (DIGITALIS PURPUREA) [Concomitant]
  4. COUMADIN [Concomitant]
  5. PULMICORT [Concomitant]
  6. OXYGEN (OXYGEN) [Concomitant]
  7. CLARINEX [Concomitant]
  8. NASACORT (TRIAMCINOLONE ACETONIDE0 [Concomitant]

REACTIONS (2)
  - PHARMACEUTICAL PRODUCT COMPLAINT [None]
  - SKIN ULCER [None]
